FAERS Safety Report 4559393-7 (Version None)
Quarter: 2005Q1

REPORT INFORMATION
  Report Type: 
  Country: None (occurrence: None)
  Receive Date: 20050124
  Receipt Date: 20040816
  Transmission Date: 20050727
  Serious: Yes (Death, Hospitalization)
  Sender: FDA-Public Use
  Company Number: PHNU2004DE02891

PATIENT
  Age: 53 Year
  Sex: Female
  Weight: 46 kg

DRUGS (6)
  1. TETRAZEPAM [Suspect]
     Indication: MUSCLE RELAXANT THERAPY
     Dosage: 25 MG, QD
     Route: 048
     Dates: start: 20040528, end: 20040810
  2. PANTOZOL [Suspect]
     Indication: REFLUX OESOPHAGITIS
     Dosage: 40 MG, QD
     Dates: end: 20040810
  3. OXCARBAZEPINE [Suspect]
     Indication: TEMPORAL LOBE EPILEPSY
     Dosage: 600 MG, BID
     Route: 048
     Dates: start: 20040501, end: 20040816
  4. LEVETIRACETAM [Suspect]
     Indication: TEMPORAL LOBE EPILEPSY
     Dosage: 1000 MG, BID
     Route: 048
     Dates: start: 20040501, end: 20040819
  5. LEVOTHYROXINE SODIUM [Suspect]
     Indication: HYPOTHYROIDISM
     Dosage: 125 UG, QD
     Route: 048
     Dates: start: 20010101, end: 20040823
  6. OXYCODONE HCL [Suspect]
     Indication: NEUROBORRELIOSIS
     Dosage: 10 MG, TID
     Route: 048
     Dates: start: 19990101, end: 20040819

REACTIONS (7)
  - ALANINE AMINOTRANSFERASE INCREASED [None]
  - APLASTIC ANAEMIA [None]
  - FEBRILE NEUTROPENIA [None]
  - INFECTION [None]
  - PANCYTOPENIA [None]
  - SEPTIC SHOCK [None]
  - SHOCK HAEMORRHAGIC [None]
